FAERS Safety Report 4732139-5 (Version None)
Quarter: 2005Q3

REPORT INFORMATION
  Report Type: 
  Country: None (occurrence: None)
  Receive Date: 20050725
  Receipt Date: 20000211
  Transmission Date: 20060218
  Serious: Yes (Other)
  Sender: FDA-Public Use
  Company Number: KII-2000-0014747

PATIENT
  Age: 38 Year
  Sex: Male

DRUGS (2)
  1. MS CONTIN [Suspect]
     Indication: PAIN
     Dosage: 15 MG, Q12H
  2. DILAUDID [Suspect]
     Indication: PAIN
     Dosage: 4 MG, Q6H, PRN

REACTIONS (2)
  - CARDIOMYOPATHY [None]
  - DRUG ABUSER [None]
